FAERS Safety Report 23870342 (Version 2)
Quarter: 2024Q2

REPORT INFORMATION
  Report Type: Spontaneous
  Country: GB (occurrence: GB)
  Receive Date: 20240517
  Receipt Date: 20240529
  Transmission Date: 20240716
  Serious: Yes (Hospitalization, Other)
  Sender: FDA-Public Use
  Company Number: GB-ViiV Healthcare Limited-GB2024EME059886

PATIENT

DRUGS (8)
  1. ZIDOVUDINE [Suspect]
     Active Substance: ZIDOVUDINE
     Indication: HIV infection
     Dosage: UNK
     Dates: start: 2005
  2. LAMIVUDINE [Suspect]
     Active Substance: LAMIVUDINE
     Indication: HIV infection
     Dosage: UNK
     Dates: start: 2005
  3. ABACAVIR [Suspect]
     Active Substance: ABACAVIR
     Indication: HIV infection
     Dosage: UNK
     Dates: end: 2010
  4. INDINAVIR [Suspect]
     Active Substance: INDINAVIR
     Indication: HIV infection
     Dosage: UNK
     Dates: start: 2005
  5. TENOFOVIR DISOPROXIL FUMARATE [Suspect]
     Active Substance: TENOFOVIR DISOPROXIL FUMARATE
     Indication: HIV infection
     Dosage: UNK
     Dates: start: 2019
  6. DARUNAVIR\RITONAVIR [Suspect]
     Active Substance: DARUNAVIR\RITONAVIR
     Indication: HIV infection
     Dosage: UNK, BID
     Dates: start: 2019
  7. NEVIRAPINE [Suspect]
     Active Substance: NEVIRAPINE
     Indication: HIV infection
     Dosage: UNK
     Dates: start: 2019
  8. TENOFOVIR ALAFENAMIDE [Suspect]
     Active Substance: TENOFOVIR ALAFENAMIDE
     Indication: HIV infection
     Dosage: UNK

REACTIONS (22)
  - Hypotension [Unknown]
  - Abdominal sepsis [Unknown]
  - Delirium [Unknown]
  - Lipodystrophy acquired [Unknown]
  - Infective aneurysm [Unknown]
  - Cardiac ventricular thrombosis [Unknown]
  - Renal impairment [Unknown]
  - Intestinal ischaemia [Unknown]
  - Portal vein thrombosis [Unknown]
  - Mesenteric artery thrombosis [Unknown]
  - Portal venous gas [Unknown]
  - Renal infarct [Unknown]
  - Acute kidney injury [Unknown]
  - Virologic failure [Unknown]
  - Pathogen resistance [Unknown]
  - Renal aneurysm [Unknown]
  - Procedural haemorrhage [Unknown]
  - Decreased appetite [Unknown]
  - Diarrhoea [Unknown]
  - Retroperitoneal disorder [Unknown]
  - Condition aggravated [Unknown]
  - Peritoneal thickening [Unknown]
